FAERS Safety Report 7828557-9 (Version None)
Quarter: 2011Q4

REPORT INFORMATION
  Report Type: 
  Country: None (occurrence: None)
  Receive Date: 20111020
  Receipt Date: 20111020
  Transmission Date: 20120403
  Serious: Yes (Other)
  Sender: FDA-Public Use
  Company Number: None

PATIENT
  Age: 38 Year
  Sex: Female
  Weight: 54.431 kg

DRUGS (1)
  1. MAGNESIUM GLYCINATE [Suspect]
     Indication: MUSCLE SPASMS
     Dosage: 400MG
     Route: 048

REACTIONS (4)
  - CONDITION AGGRAVATED [None]
  - PRODUCT TASTE ABNORMAL [None]
  - PAROSMIA [None]
  - MUSCLE SPASMS [None]
